FAERS Safety Report 6182848-9 (Version None)
Quarter: 2009Q2

REPORT INFORMATION
  Report Type: 
  Country: None (occurrence: None)
  Receive Date: 20090507
  Receipt Date: 20090429
  Transmission Date: 20091009
  Serious: Yes (Hospitalization, Other)
  Sender: FDA-Public Use
  Company Number: DE-GENENTECH-282281

PATIENT
  Sex: Male

DRUGS (4)
  1. RAPTIVA [Suspect]
     Indication: PSORIASIS
     Dosage: UNK
  2. METHOTREXATE SODIUM [Concomitant]
     Indication: PSORIASIS
     Dosage: 15 MG, 1/WEEK
     Dates: start: 20080215
  3. METHOTREXATE SODIUM [Concomitant]
     Dosage: 7.5 MG, Q2W
     Dates: start: 20080409
  4. METHOTREXATE SODIUM [Concomitant]
     Dosage: 10 MG, 1/WEEK
     Dates: start: 20080814

REACTIONS (18)
  - ABDOMINAL DISCOMFORT [None]
  - ARTHRALGIA [None]
  - CARPAL TUNNEL SYNDROME [None]
  - CHRONIC TONSILLITIS [None]
  - DEPRESSION [None]
  - DIARRHOEA [None]
  - GAIT DISTURBANCE [None]
  - HYPOAESTHESIA [None]
  - INFLAMMATION [None]
  - INTERVERTEBRAL DISC PROTRUSION [None]
  - NAUSEA [None]
  - OEDEMA PERIPHERAL [None]
  - PAIN [None]
  - PAIN IN EXTREMITY [None]
  - PARALYSIS [None]
  - POLYNEUROPATHY [None]
  - PSORIASIS [None]
  - PSORIATIC ARTHROPATHY [None]
